FAERS Safety Report 25362836 (Version 1)
Quarter: 2025Q2

REPORT INFORMATION
  Report Type: Spontaneous
  Country: US (occurrence: None)
  Receive Date: 20250523
  Receipt Date: 20250523
  Transmission Date: 20250717
  Serious: No
  Sender: FDA-CTU
  Company Number: None

PATIENT
  Age: 31 Year
  Sex: Female
  Weight: 76.5 kg

DRUGS (4)
  1. ZYRTEC [Suspect]
     Active Substance: CETIRIZINE HYDROCHLORIDE
     Indication: Skin irritation
     Route: 048
     Dates: start: 20010501, end: 20180501
  2. CLARITIN [Suspect]
     Active Substance: LORATADINE
  3. Ferrous sulfate (iron 65 mg) [Concomitant]
  4. VITAMINS [Concomitant]
     Active Substance: VITAMINS

REACTIONS (6)
  - Pruritus [None]
  - Drug dependence [None]
  - Urticaria [None]
  - Pruritus [None]
  - Tongue pruritus [None]
  - Sensitivity to weather change [None]

NARRATIVE: CASE EVENT DATE: 20180501
